FAERS Safety Report 23548903 (Version 1)
Quarter: 2024Q1

REPORT INFORMATION
  Report Type: Spontaneous
  Country: CZ (occurrence: CZ)
  Receive Date: 20240221
  Receipt Date: 20240221
  Transmission Date: 20240409
  Serious: Yes (Other)
  Sender: FDA-Public Use
  Company Number: None

PATIENT
  Age: 45 Year
  Sex: Female
  Weight: 75 kg

DRUGS (2)
  1. LORATADINE\PSEUDOEPHEDRINE SULFATE [Suspect]
     Active Substance: LORATADINE\PSEUDOEPHEDRINE SULFATE
     Indication: Influenza
     Dosage: 1 DF, OM
     Route: 048
     Dates: start: 20240202, end: 20240203
  2. ERDOSTEINE [Concomitant]
     Active Substance: ERDOSTEINE
     Indication: Influenza
     Route: 048
     Dates: start: 20240202, end: 20240204

REACTIONS (2)
  - Loss of consciousness [Unknown]
  - Palpitations [Unknown]

NARRATIVE: CASE EVENT DATE: 20240202
